FAERS Safety Report 7465986-X (Version None)
Quarter: 2011Q2

REPORT INFORMATION
  Report Type: 
  Country: None (occurrence: None)
  Receive Date: 20110509
  Receipt Date: 20101111
  Transmission Date: 20111010
  Serious: No
  Sender: FDA-Public Use
  Company Number: US-ALEXION-A200900273

PATIENT
  Sex: Male

DRUGS (17)
  1. ZOCOR [Concomitant]
     Dosage: 10 MG, QD
  2. NEXIUM [Concomitant]
     Dosage: 40 MG, BID
  3. SOLIRIS [Suspect]
     Dosage: 900 MG, Q2WK
     Route: 042
     Dates: start: 20080116
  4. ALDACTONE [Concomitant]
     Dosage: 12.5 MG, QOD
  5. ALLOPURINOL [Concomitant]
     Dosage: 100 MG, QD
  6. ALTACE [Concomitant]
     Dosage: 2.5 MG, QD
  7. FLOMAX [Concomitant]
     Dosage: .4 MG, QD
  8. PROSCAR [Concomitant]
     Dosage: 5 MG, QD
  9. RYTHMOL [Concomitant]
     Dosage: 150 MG, TID
  10. COUMADIN [Concomitant]
     Dosage: 5 MG FOUR DAYS/WEEK, UNK
  11. SOLIRIS [Suspect]
     Indication: PAROXYSMAL NOCTURNAL HAEMOGLOBINURIA
     Dosage: 600 MG, QWK X4
     Route: 042
     Dates: start: 20071219, end: 20080109
  12. LANOXIN [Concomitant]
     Dosage: .125 MG, 5 DAY/WK
  13. COUMADIN [Concomitant]
     Dosage: 7.5 MG MWF/WEEK, UNK
  14. LASIX [Concomitant]
     Dosage: 40 MG, QOD
  15. PREDNISONE [Concomitant]
     Dosage: 5 MG, QD
  16. FOLIC ACID [Concomitant]
     Dosage: 1 MG, QD
  17. COREG [Concomitant]
     Dosage: 25 MG, BID

REACTIONS (3)
  - THROMBOSIS [None]
  - ARTHRITIS [None]
  - GAIT DISTURBANCE [None]
